FAERS Safety Report 12205039 (Version 5)
Quarter: 2024Q3

REPORT INFORMATION
  Report Type: Spontaneous
  Country: JP (occurrence: JP)
  Receive Date: 20160323
  Receipt Date: 20240802
  Transmission Date: 20241016
  Serious: Yes (Other)
  Sender: MERCK
  Company Number: JP-009507513-1603JPN008869

PATIENT
  Age: 15 Year
  Sex: Male
  Weight: 60 kg

DRUGS (65)
  1. EMEND [Interacting]
     Active Substance: APREPITANT
     Indication: Prophylaxis of nausea and vomiting
     Dosage: 125 MG, EVERYDAY
     Route: 048
  2. EMEND [Interacting]
     Active Substance: APREPITANT
     Dosage: 80 MG, EVERYDAY
     Route: 048
  3. WARFARIN [Interacting]
     Active Substance: WARFARIN
     Dosage: 2 MG, EVERYDAY
     Route: 048
  4. WARFARIN [Interacting]
     Active Substance: WARFARIN
     Dosage: 2.5 MG, EVERYDAY
     Route: 048
  5. WARFARIN [Interacting]
     Active Substance: WARFARIN
     Dosage: UNK
     Route: 048
  6. WARFARIN [Interacting]
     Active Substance: WARFARIN
     Dosage: UNK
     Route: 048
  7. WARFARIN [Interacting]
     Active Substance: WARFARIN
     Dosage: 2 MG, EVERYDAY
     Route: 048
  8. WARFARIN [Interacting]
     Active Substance: WARFARIN
     Dosage: 2 MG, EVERYDAY
     Route: 048
  9. WARFARIN [Interacting]
     Active Substance: WARFARIN
     Dosage: 2.5 MG, EVERYDAY
     Route: 048
  10. WARFARIN [Interacting]
     Active Substance: WARFARIN
     Dosage: 2.5 MG, EVERYDAY
     Route: 048
  11. ETOPOSIDE [Concomitant]
     Active Substance: ETOPOSIDE
     Indication: Rhabdomyosarcoma
     Dosage: 100MG/M2 (160MG/BODY)
     Route: 042
  12. ETOPOSIDE [Concomitant]
     Active Substance: ETOPOSIDE
     Dosage: 100MG/M2 (160MG/BODY)
     Route: 042
  13. ETOPOSIDE [Concomitant]
     Active Substance: ETOPOSIDE
     Dosage: 100MG/M2 (160MG/BODY)
     Route: 042
  14. ETOPOSIDE [Concomitant]
     Active Substance: ETOPOSIDE
     Dosage: 100MG/M2 (160MG/BODY)
     Route: 042
  15. IFOSFAMIDE [Concomitant]
     Active Substance: IFOSFAMIDE
     Indication: Rhabdomyosarcoma
     Dosage: 1800MG/M2 (2900MG/BODY)
     Route: 042
  16. IFOSFAMIDE [Concomitant]
     Active Substance: IFOSFAMIDE
     Dosage: 1800MG/M2 (2900MG/BODY)
     Route: 042
  17. IFOSFAMIDE [Concomitant]
     Active Substance: IFOSFAMIDE
     Dosage: 1800MG/M2 (2900MG/BODY)
     Route: 042
  18. IFOSFAMIDE [Concomitant]
     Active Substance: IFOSFAMIDE
     Dosage: 1800MG/M2 (2900MG/BODY)
     Route: 042
  19. VINCRISTINE SULFATE [Concomitant]
     Active Substance: VINCRISTINE SULFATE
     Indication: Rhabdomyosarcoma
     Dosage: 1.5MG/M2 (2MG/BODY)
     Route: 042
  20. VINCRISTINE SULFATE [Concomitant]
     Active Substance: VINCRISTINE SULFATE
     Dosage: 1.5MG/M2 (2MG/BODY)
     Route: 042
  21. VINCRISTINE SULFATE [Concomitant]
     Active Substance: VINCRISTINE SULFATE
     Dosage: 1.5MG/M2 (2MG/BODY)
     Route: 042
  22. VINCRISTINE SULFATE [Concomitant]
     Active Substance: VINCRISTINE SULFATE
     Dosage: 1.5MG/M2 (2MG/BODY)
     Route: 042
  23. DOXORUBICIN HYDROCHLORIDE [Concomitant]
     Active Substance: DOXORUBICIN HYDROCHLORIDE
     Indication: Rhabdomyosarcoma
     Dosage: 37.5MG/M2(60MG/BODY)
     Route: 042
  24. DOXORUBICIN HYDROCHLORIDE [Concomitant]
     Active Substance: DOXORUBICIN HYDROCHLORIDE
     Dosage: 37.5MG/M2(60MG/BODY)
     Route: 042
  25. DOXORUBICIN HYDROCHLORIDE [Concomitant]
     Active Substance: DOXORUBICIN HYDROCHLORIDE
     Dosage: 37.5MG/M2(60MG/BODY)
     Route: 042
  26. DOXORUBICIN HYDROCHLORIDE [Concomitant]
     Active Substance: DOXORUBICIN HYDROCHLORIDE
     Dosage: 37.5MG/M2(60MG/BODY)
     Route: 042
  27. CYCLOPHOSPHAMIDE [Concomitant]
     Active Substance: CYCLOPHOSPHAMIDE
     Indication: Rhabdomyosarcoma
     Dosage: 1200MG/M2(1900MG/BODY)
     Route: 042
  28. CYCLOPHOSPHAMIDE [Concomitant]
     Active Substance: CYCLOPHOSPHAMIDE
     Dosage: 1200MG/M2(1900MG/BODY)
     Route: 042
  29. CYCLOPHOSPHAMIDE [Concomitant]
     Active Substance: CYCLOPHOSPHAMIDE
     Dosage: 1200MG/M2(1900MG/BODY)
     Route: 042
  30. CYCLOPHOSPHAMIDE [Concomitant]
     Active Substance: CYCLOPHOSPHAMIDE
     Dosage: 1200MG/M2(1900MG/BODY)
     Route: 042
  31. DEXAMETHASONE SODIUM PHOSPHATE [Concomitant]
     Active Substance: DEXAMETHASONE PHOSPHATE\DEXAMETHASONE SODIUM PHOSPHATE
     Dosage: 3.3 MG, Q12H
     Route: 042
  32. DEXAMETHASONE SODIUM PHOSPHATE [Concomitant]
     Active Substance: DEXAMETHASONE PHOSPHATE\DEXAMETHASONE SODIUM PHOSPHATE
     Dosage: 3.3 MG, Q12H
     Route: 042
  33. DEXAMETHASONE SODIUM PHOSPHATE [Concomitant]
     Active Substance: DEXAMETHASONE PHOSPHATE\DEXAMETHASONE SODIUM PHOSPHATE
     Dosage: 3.3 MG, Q12H
     Route: 042
  34. DEXAMETHASONE SODIUM PHOSPHATE [Concomitant]
     Active Substance: DEXAMETHASONE PHOSPHATE\DEXAMETHASONE SODIUM PHOSPHATE
     Dosage: 3.3 MG, Q12H
     Route: 042
  35. DEXAMETHASONE SODIUM PHOSPHATE [Concomitant]
     Active Substance: DEXAMETHASONE PHOSPHATE\DEXAMETHASONE SODIUM PHOSPHATE
     Dosage: 3.3 MG, Q12H
     Route: 042
  36. DEXAMETHASONE SODIUM PHOSPHATE [Concomitant]
     Active Substance: DEXAMETHASONE PHOSPHATE\DEXAMETHASONE SODIUM PHOSPHATE
     Dosage: 3.3 MG, Q12H
     Route: 042
  37. DEXAMETHASONE SODIUM PHOSPHATE [Concomitant]
     Active Substance: DEXAMETHASONE PHOSPHATE\DEXAMETHASONE SODIUM PHOSPHATE
     Dosage: 3.3 MG, Q12H
     Route: 042
  38. DEXAMETHASONE SODIUM PHOSPHATE [Concomitant]
     Active Substance: DEXAMETHASONE PHOSPHATE\DEXAMETHASONE SODIUM PHOSPHATE
     Dosage: 3.3 MG, Q12H
     Route: 042
  39. FAMOTIDINE [Concomitant]
     Active Substance: FAMOTIDINE
     Dosage: 20 MG, Q12H
     Route: 042
  40. FAMOTIDINE [Concomitant]
     Active Substance: FAMOTIDINE
     Dosage: 20 MG, Q12H
     Route: 042
  41. FAMOTIDINE [Concomitant]
     Active Substance: FAMOTIDINE
     Dosage: 20 MG, Q12H
     Route: 042
  42. FAMOTIDINE [Concomitant]
     Active Substance: FAMOTIDINE
     Dosage: 20 MG, Q12H
     Route: 042
  43. FAMOTIDINE [Concomitant]
     Active Substance: FAMOTIDINE
     Dosage: 20 MG, Q12H
     Route: 042
  44. FAMOTIDINE [Concomitant]
     Active Substance: FAMOTIDINE
     Dosage: 20 MG, Q12H
     Route: 042
  45. FAMOTIDINE [Concomitant]
     Active Substance: FAMOTIDINE
     Dosage: 20 MG, Q12H
     Route: 042
  46. FAMOTIDINE [Concomitant]
     Active Substance: FAMOTIDINE
     Dosage: 20 MG, Q12H
     Route: 042
  47. MESNA [Concomitant]
     Active Substance: MESNA
     Dosage: 600 MG, Q6H
     Route: 042
  48. MESNA [Concomitant]
     Active Substance: MESNA
     Dosage: 600 MG, Q6H
     Route: 042
  49. MESNA [Concomitant]
     Active Substance: MESNA
     Dosage: 600 MG, Q6H
     Route: 042
  50. MESNA [Concomitant]
     Active Substance: MESNA
     Dosage: 600 MG, Q6H
     Route: 042
  51. MESNA [Concomitant]
     Active Substance: MESNA
     Dosage: 600 MG, Q6H
     Route: 042
  52. MESNA [Concomitant]
     Active Substance: MESNA
     Dosage: 600 MG, Q6H
     Route: 042
  53. MESNA [Concomitant]
     Active Substance: MESNA
     Dosage: 600 MG, Q6H
     Route: 042
  54. MESNA [Concomitant]
     Active Substance: MESNA
     Dosage: 600 MG, Q6H
     Route: 042
  55. FLUCONAZOLE [Concomitant]
     Active Substance: FLUCONAZOLE
     Dosage: 100 MG, EVERYDAY
     Route: 048
  56. MENATETRENONE [Concomitant]
     Active Substance: MENATETRENONE
     Dosage: UNK
     Route: 042
  57. ONDANSETRON [Concomitant]
     Active Substance: ONDANSETRON
     Dosage: 4 MG, Q12H
     Route: 042
  58. ONDANSETRON [Concomitant]
     Active Substance: ONDANSETRON
     Dosage: 4 MG, Q12H
     Route: 042
  59. ONDANSETRON [Concomitant]
     Active Substance: ONDANSETRON
     Dosage: 4 MG, Q12H
     Route: 042
  60. ONDANSETRON [Concomitant]
     Active Substance: ONDANSETRON
     Dosage: 4 MG, Q12H
     Route: 042
  61. ONDANSETRON [Concomitant]
     Active Substance: ONDANSETRON
     Dosage: 4 MG, Q12H
     Route: 042
  62. ONDANSETRON [Concomitant]
     Active Substance: ONDANSETRON
     Dosage: 4 MG, Q12H
     Route: 042
  63. ONDANSETRON [Concomitant]
     Active Substance: ONDANSETRON
     Dosage: 4 MG, Q12H
     Route: 042
  64. ONDANSETRON [Concomitant]
     Active Substance: ONDANSETRON
     Dosage: 4 MG, Q12H
     Route: 042
  65. HEPARIN CALCIUM [Concomitant]
     Active Substance: HEPARIN CALCIUM
     Dosage: UNK
     Route: 042

REACTIONS (5)
  - Metastases to central nervous system [Unknown]
  - Seizure [Unknown]
  - Loss of consciousness [Unknown]
  - International normalised ratio increased [Unknown]
  - Drug interaction [Unknown]
